FAERS Safety Report 5144888-8 (Version None)
Quarter: 2006Q4

REPORT INFORMATION
  Report Type: 
  Country: None (occurrence: None)
  Receive Date: 20061107
  Receipt Date: 20061025
  Transmission Date: 20070319
  Serious: Yes (Other)
  Sender: FDA-Public Use
  Company Number: AUWYE328525OCT06

PATIENT
  Sex: Male

DRUGS (1)
  1. ENBREL [Suspect]
     Indication: RHEUMATOID ARTHRITIS
     Route: 058
     Dates: start: 20060824, end: 20061001

REACTIONS (6)
  - EYE PAIN [None]
  - HEADACHE [None]
  - OPTIC NEURITIS [None]
  - SINUSITIS [None]
  - VISION BLURRED [None]
  - VISUAL BRIGHTNESS [None]
